FAERS Safety Report 8149542-6 (Version None)
Quarter: 2012Q1

REPORT INFORMATION
  Report Type: 
  Country: None (occurrence: None)
  Receive Date: 20120218
  Receipt Date: 20111031
  Transmission Date: 20120608
  Serious: No
  Sender: FDA-Public Use
  Company Number: US-ALLERGAN-1114344US

PATIENT
  Sex: Female

DRUGS (4)
  1. BIRTH CONTROL PILLS [Concomitant]
  2. BOTOX COSMETIC [Suspect]
     Indication: SKIN WRINKLING
     Dosage: 31 UNITS, SINGLE
     Route: 030
     Dates: start: 20111021, end: 20111021
  3. VITAMIN TAB [Concomitant]
  4. BOTOX COSMETIC [Suspect]

REACTIONS (3)
  - WRONG TECHNIQUE IN DRUG USAGE PROCESS [None]
  - DRUG INEFFECTIVE [None]
  - POOR QUALITY DRUG ADMINISTERED [None]
